FAERS Safety Report 5568917-2 (Version None)
Quarter: 2007Q4

REPORT INFORMATION
  Report Type: 
  Country: None (occurrence: None)
  Receive Date: 20071220
  Receipt Date: 20070320
  Transmission Date: 20080405
  Serious: No
  Sender: FDA-Public Use
  Company Number: A0643921A

PATIENT
  Age: 54 Year
  Sex: Male

DRUGS (6)
  1. AVODART [Suspect]
     Indication: DRUG USE FOR UNKNOWN INDICATION
     Dosage: .5MG PER DAY
     Route: 048
     Dates: start: 20061222
  2. PREDNISONE [Concomitant]
  3. ASTHMA MEDICATION [Concomitant]
  4. XOLAIR [Concomitant]
  5. BLOOD PRESSURE MEDICATION [Concomitant]
  6. STOOL SOFTENER [Concomitant]

REACTIONS (3)
  - ERYTHEMA [None]
  - PRURITUS [None]
  - RASH [None]
